FAERS Safety Report 7646105-3 (Version None)
Quarter: 2011Q3

REPORT INFORMATION
  Report Type: 
  Country: None (occurrence: None)
  Receive Date: 20110801
  Receipt Date: 20110720
  Transmission Date: 20111222
  Serious: No
  Sender: FDA-Public Use
  Company Number: US-BIOGENIDEC-2010BI038227

PATIENT
  Age: 51 Year
  Sex: Female

DRUGS (3)
  1. TYSABRI [Suspect]
     Indication: MULTIPLE SCLEROSIS
     Route: 042
     Dates: start: 20100903, end: 20110318
  2. AVONEX [Concomitant]
     Route: 030
  3. AVONEX [Concomitant]
     Indication: MULTIPLE SCLEROSIS
     Route: 030
     Dates: start: 20000815

REACTIONS (9)
  - DERMAL CYST [None]
  - ACNE [None]
  - MALAISE [None]
  - UPPER RESPIRATORY TRACT INFECTION [None]
  - RASH ERYTHEMATOUS [None]
  - INFLUENZA LIKE ILLNESS [None]
  - INFUSION RELATED REACTION [None]
  - SOMNOLENCE [None]
  - DRUG SPECIFIC ANTIBODY PRESENT [None]
